FAERS Safety Report 14336784 (Version 1)
Quarter: 2017Q4

REPORT INFORMATION
  Report Type: Spontaneous
  Country: US (occurrence: US)
  Receive Date: 20171229
  Receipt Date: 20171229
  Transmission Date: 20180321
  Serious: No
  Sender: FDA-Public Use
  Company Number: US-BAYER-2017-248741

PATIENT
  Age: 54 Year
  Sex: Female

DRUGS (1)
  1. CLIMARA PRO [Suspect]
     Active Substance: ESTRADIOL\LEVONORGESTREL
     Indication: HORMONE REPLACEMENT THERAPY
     Dosage: 0.045MG /0.015MG
     Route: 062
     Dates: start: 2012

REACTIONS (4)
  - Device breakage [None]
  - Product physical issue [Recovered/Resolved]
  - Mental disorder [None]
  - Affect lability [None]

NARRATIVE: CASE EVENT DATE: 2017
